FAERS Safety Report 26048617 (Version 2)
Quarter: 2025Q4

REPORT INFORMATION
  Report Type: Report from Study
  Country: CA (occurrence: CA)
  Receive Date: 20251114
  Receipt Date: 20251201
  Transmission Date: 20260117
  Serious: Yes (Other)
  Sender: ABBVIE
  Company Number: CA-ABBVIE-6538534

PATIENT
  Age: 77 Year
  Sex: Male

DRUGS (2)
  1. VYALEV [Suspect]
     Active Substance: FOSCARBIDOPA\FOSLEVODOPA
     Indication: Product used for unknown indication
     Dosage: SWITCH TO LOW FOR 24 HOURS?LAST ADMIN DATE:2025
     Route: 058
     Dates: start: 20250723
  2. VYALEV [Suspect]
     Active Substance: FOSCARBIDOPA\FOSLEVODOPA
     Dosage: BACK TO BASE RATE?FIRST ADMIN DATE: 2025
     Route: 058

REACTIONS (9)
  - Hip surgery [Unknown]
  - Device dislocation [Not Recovered/Not Resolved]
  - Infusion site bruising [Not Recovered/Not Resolved]
  - Gastrointestinal disorder [Not Recovered/Not Resolved]
  - Fall [Unknown]
  - Bedridden [Not Recovered/Not Resolved]
  - Dysphonia [Unknown]
  - Dysphagia [Unknown]
  - Dyskinesia [Unknown]

NARRATIVE: CASE EVENT DATE: 20250101
